FAERS Safety Report 8224191-X (Version None)
Quarter: 2012Q1

REPORT INFORMATION
  Report Type: 
  Country: None (occurrence: None)
  Receive Date: 20120321
  Receipt Date: 20120309
  Transmission Date: 20120608
  Serious: Yes (Other)
  Sender: FDA-Public Use
  Company Number: JP-BRISTOL-MYERS SQUIBB COMPANY-16432239

PATIENT
  Age: 23 Year
  Sex: Female

DRUGS (1)
  1. METFORMIN HCL [Suspect]
     Indication: DIABETES MELLITUS
     Dosage: MORE THAN 1 YEAR AGO STOPPED.
     Route: 048

REACTIONS (2)
  - PREGNANCY [None]
  - ABORTION SPONTANEOUS [None]
